FAERS Safety Report 5264113-7 (Version None)
Quarter: 2007Q1

REPORT INFORMATION
  Report Type: 
  Country: None (occurrence: None)
  Receive Date: 20070313
  Receipt Date: 20070305
  Transmission Date: 20070707
  Serious: Yes (Hospitalization)
  Sender: FDA-Public Use
  Company Number: DE-BRISTOL-MYERS SQUIBB COMPANY-13710900

PATIENT
  Age: 43 Year
  Sex: Female

DRUGS (6)
  1. UROMITEXAN [Suspect]
     Indication: CHEMOTHERAPY
     Route: 042
     Dates: start: 20070206, end: 20070206
  2. CYCLOPHOSPHAMIDE [Suspect]
     Indication: CHEMOTHERAPY
     Route: 042
     Dates: start: 20070206, end: 20070206
  3. TAXOTERE [Suspect]
     Indication: CHEMOTHERAPY
     Route: 042
     Dates: start: 20070206, end: 20070206
  4. ADRIAMYCIN PFS [Concomitant]
     Route: 042
     Dates: start: 20070206
  5. GLUCOSE [Concomitant]
  6. SODIUM ACETATE [Concomitant]

REACTIONS (10)
  - ALANINE AMINOTRANSFERASE INCREASED [None]
  - ASPARTATE AMINOTRANSFERASE INCREASED [None]
  - BLOOD BILIRUBIN INCREASED [None]
  - DIARRHOEA [None]
  - GAMMA-GLUTAMYLTRANSFERASE INCREASED [None]
  - GENERAL PHYSICAL HEALTH DETERIORATION [None]
  - LEUKOPENIA [None]
  - NAUSEA [None]
  - PYREXIA [None]
  - VOMITING [None]
